FAERS Safety Report 16262676 (Version 3)
Quarter: 2019Q3

REPORT INFORMATION
  Report Type: Report from Study
  Country: US (occurrence: US)
  Receive Date: 20190502
  Receipt Date: 20190703
  Transmission Date: 20191004
  Serious: No
  Sender: FDA-Public Use
  Company Number: US-ALEXION PHARMACEUTICALS INC.-A201906319

PATIENT
  Sex: Male

DRUGS (1)
  1. SOLIRIS [Suspect]
     Active Substance: ECULIZUMAB
     Indication: PRODUCT USED FOR UNKNOWN INDICATION
     Route: 065

REACTIONS (11)
  - Dysarthria [Unknown]
  - Muscular weakness [Unknown]
  - Dysphagia [Unknown]
  - Muscle spasms [Unknown]
  - Fatigue [Unknown]
  - Eyelid ptosis [Unknown]
  - Muscle tightness [Unknown]
  - Headache [Unknown]
  - Diarrhoea [Not Recovered/Not Resolved]
  - Skin burning sensation [Unknown]
  - Trismus [Unknown]
